FAERS Safety Report 7231525-1 (Version None)
Quarter: 2011Q1

REPORT INFORMATION
  Report Type: 
  Country: None (occurrence: None)
  Receive Date: 20110107
  Receipt Date: 20100319
  Transmission Date: 20110831
  Serious: Yes (Other)
  Sender: FDA-Public Use
  Company Number: AMI0019395

PATIENT

DRUGS (1)
  1. TIMOPTIC-XE [Suspect]
     Dosage: 046

REACTIONS (1)
  - ASTHMA [None]
